FAERS Safety Report 11541393 (Version 5)
Quarter: 2015Q4

REPORT INFORMATION
  Report Type: Report from Study
  Country: US (occurrence: US)
  Receive Date: 20150923
  Receipt Date: 20151222
  Transmission Date: 20160304
  Serious: No
  Sender: FDA-Public Use
  Company Number: PHEH2015US018215

PATIENT
  Age: 64 Year
  Sex: Female

DRUGS (2)
  1. COSENTYX [Suspect]
     Active Substance: SECUKINUMAB
     Indication: PSORIASIS
     Dosage: 300 MG, QMO
     Route: 058
     Dates: start: 20150909
  2. LORAZEPAM. [Concomitant]
     Active Substance: LORAZEPAM
     Indication: PRODUCT USED FOR UNKNOWN INDICATION
     Dosage: 5 MG, UNK
     Route: 065

REACTIONS (15)
  - Gait disturbance [Unknown]
  - Injection site haemorrhage [Unknown]
  - Injection site urticaria [Unknown]
  - Drug ineffective [Unknown]
  - Hypersensitivity [Unknown]
  - Injection site rash [Unknown]
  - Depression [Unknown]
  - Peripheral swelling [Unknown]
  - Erythema [Unknown]
  - Fall [Unknown]
  - Limb injury [Unknown]
  - Dyspnoea [Unknown]
  - Swollen tongue [Unknown]
  - Psoriasis [Unknown]
  - Skin tightness [Unknown]

NARRATIVE: CASE EVENT DATE: 20151103
